FAERS Safety Report 4522781-9 (Version None)
Quarter: 2004Q4

REPORT INFORMATION
  Report Type: 
  Country: None (occurrence: None)
  Receive Date: 20041207
  Receipt Date: 20041119
  Transmission Date: 20050328
  Serious: Yes (Death, Hospitalization)
  Sender: FDA-Public Use
  Company Number: A02200403450

PATIENT
  Age: 87 Year
  Sex: Male

DRUGS (8)
  1. ZOLPIDEM TARTRATE [Suspect]
     Dosage: 10 MG OD ORAL
     Route: 048
  2. XATRAL - (ALFUZOSIN) [Suspect]
     Dosage: 5 MG OD ORAL
     Route: 048
  3. ASPIRIN [Suspect]
     Dosage: 160 MG OD ORAL
     Route: 048
     Dates: end: 20031122
  4. DEPAKENE [Suspect]
     Dosage: 750 MG ORAL
     Route: 048
  5. DAFLON - (DIOSMIN) [Suspect]
     Dosage: 750 MG ORAL
     Route: 048
  6. LASIX [Suspect]
     Dosage: 40 MG OD ORAL
     Route: 048
  7. MOTILIUM [Suspect]
     Dosage: 30 MG ORAL
     Route: 048
  8. PENTASA [Suspect]
     Dosage: 500 MG BID ORAL
     Route: 048

REACTIONS (8)
  - FALL [None]
  - HAEMOGLOBIN DECREASED [None]
  - HEAD INJURY [None]
  - LOSS OF CONSCIOUSNESS [None]
  - MALAISE [None]
  - MEDICATION ERROR [None]
  - SKIN INJURY [None]
  - SUBARACHNOID HAEMORRHAGE [None]
